FAERS Safety Report 7300908-3 (Version None)
Quarter: 2010Q4

REPORT INFORMATION
  Report Type: 
  Country: None (occurrence: None)
  Receive Date: 20101230
  Receipt Date: 20100916
  Transmission Date: 20110411
  Serious: Yes (Other)
  Sender: FDA-Public Use
  Company Number: 20100448

PATIENT
  Age: 70 Year
  Sex: Female
  Weight: 75.7507 kg

DRUGS (1)
  1. VENOFER [Suspect]
     Indication: IRON DEFICIENCY ANAEMIA
     Dosage: 400 MG OVER 4 HOURS INTRAVENOUS
     Route: 042
     Dates: start: 20091101, end: 20091101

REACTIONS (2)
  - ARTHRALGIA [None]
  - MYALGIA [None]
